FAERS Safety Report 8846101 (Version 7)
Quarter: 2013Q2

REPORT INFORMATION
  Report Type: Spontaneous
  Country: US (occurrence: US)
  Receive Date: 20121017
  Receipt Date: 20130404
  Transmission Date: 20140414
  Serious: Yes (Hospitalization, Other)
  Sender: FDA-Public Use
  Company Number: US-009507513-1205USA02055

PATIENT
  Sex: Female
  Weight: 86.17 kg

DRUGS (6)
  1. FOSAMAX [Suspect]
     Indication: OSTEOPOROSIS
     Dosage: 10 MG, QD
     Route: 048
     Dates: start: 200201, end: 200806
  2. FOSAMAX [Suspect]
     Indication: OSTEOPOROSIS
     Dosage: 10 MG, QD
     Route: 048
     Dates: start: 20080623, end: 20100510
  3. CALCIUM (UNSPECIFIED) [Concomitant]
     Dosage: 1000 MG, UNK
  4. ASCORBIC ACID [Concomitant]
     Dosage: 2000 MG, UNK
  5. VITAMIN D (UNSPECIFIED) [Concomitant]
     Dosage: 2000 MG, UNK
  6. FOLIC ACID [Concomitant]
     Dosage: 1 MG, UNK
     Dates: start: 2002

REACTIONS (48)
  - Femur fracture [Unknown]
  - Open reduction of fracture [Unknown]
  - Femur fracture [Unknown]
  - Intramedullary rod insertion [Unknown]
  - Medical device removal [Unknown]
  - Adenotonsillectomy [Unknown]
  - Surgery [Unknown]
  - Fall [Unknown]
  - Fall [Unknown]
  - Hyponatraemia [Not Recovered/Not Resolved]
  - Hypokalaemia [Recovered/Resolved]
  - Pulmonary embolism [Unknown]
  - Bunion operation [Unknown]
  - Cataract operation [Unknown]
  - Appendicectomy [Unknown]
  - Hernia repair [Unknown]
  - Hysterectomy [Unknown]
  - Salpingectomy [Unknown]
  - Fracture nonunion [Unknown]
  - Hypertension [Not Recovered/Not Resolved]
  - Anaemia [Unknown]
  - Osteoarthritis [Unknown]
  - Spinal column stenosis [Unknown]
  - Weight decreased [Unknown]
  - Chest pain [Unknown]
  - Anaemia [Unknown]
  - Gait disturbance [Unknown]
  - Kyphoscoliosis [Unknown]
  - Osteopenia [Unknown]
  - Injury [Unknown]
  - Contusion [Unknown]
  - Scoliosis [Unknown]
  - Fall [Unknown]
  - Joint injury [Unknown]
  - Limb injury [Unknown]
  - Lumbar radiculopathy [Unknown]
  - Contusion [Unknown]
  - Muscle strain [Unknown]
  - Contusion [Unknown]
  - Contusion [Unknown]
  - Ligament sprain [Unknown]
  - Ligament sprain [Unknown]
  - Muscle strain [Unknown]
  - Spinal osteoarthritis [Unknown]
  - Contusion [Unknown]
  - Contusion [Unknown]
  - Back pain [Unknown]
  - Gastrooesophageal reflux disease [Unknown]
